FAERS Safety Report 7822645-9 (Version None)
Quarter: 2011Q4

REPORT INFORMATION
  Report Type: 
  Country: None (occurrence: None)
  Receive Date: 20111018
  Receipt Date: 20111013
  Transmission Date: 20120403
  Serious: Yes (Life-Threatening)
  Sender: FDA-Public Use
  Company Number: US-ASTRAZENECA-2011SE61909

PATIENT
  Sex: Male

DRUGS (2)
  1. OTHER MEDICATION [Suspect]
  2. ATACAND [Suspect]
     Route: 048

REACTIONS (1)
  - APPARENT DEATH [None]
